FAERS Safety Report 21880238 (Version 1)
Quarter: 2023Q1

REPORT INFORMATION
  Report Type: Spontaneous
  Country: US (occurrence: US)
  Receive Date: 20230118
  Receipt Date: 20230118
  Transmission Date: 20230417
  Serious: Yes (Hospitalization, Other)
  Sender: FDA-Public Use
  Company Number: US-ALLERGAN-2300691US

PATIENT
  Sex: Female
  Weight: 1.814 kg

DRUGS (1)
  1. CRINONE [Suspect]
     Active Substance: PROGESTERONE
     Indication: Exposure during pregnancy
     Dosage: UNK
     Route: 064

REACTIONS (3)
  - Umbilical cord around neck [Recovered/Resolved]
  - Breech presentation [Recovered/Resolved]
  - Premature baby [Unknown]

NARRATIVE: CASE EVENT DATE: 20090101
